FAERS Safety Report 5078933-5 (Version None)
Quarter: 2006Q3

REPORT INFORMATION
  Report Type: 
  Country: None (occurrence: None)
  Receive Date: 20060809
  Receipt Date: 20060809
  Transmission Date: 20061208
  Serious: Yes (Life-Threatening)
  Sender: FDA-Public Use
  Company Number: None

PATIENT
  Age: 42 Year
  Sex: Male
  Weight: 97.5234 kg

DRUGS (1)
  1. AUGMENTIN '200' [Suspect]
     Indication: SINUSITIS
     Dosage: 875MG 2 TIMES DAILY PO
     Route: 048
     Dates: start: 20060501, end: 20060530

REACTIONS (1)
  - HEPATIC FAILURE [None]
